FAERS Safety Report 8243129-2 (Version None)
Quarter: 2012Q1

REPORT INFORMATION
  Report Type: 
  Country: None (occurrence: None)
  Receive Date: 20120329
  Receipt Date: 20120327
  Transmission Date: 20120608
  Serious: Yes (Hospitalization)
  Sender: FDA-Public Use
  Company Number: US-BAYER-2012-030236

PATIENT
  Age: 65 Year
  Sex: Female

DRUGS (9)
  1. METFORMIN HCL [Concomitant]
  2. CHERATUSSIN [Concomitant]
  3. LIPITOR [Concomitant]
  4. AMLODIPINE [Concomitant]
  5. CALCIUM CARBONATE [Concomitant]
  6. ANTIHISTAMINES [Concomitant]
  7. AVELOX [Suspect]
     Indication: PNEUMONIA
     Dosage: 400 MG, QD
     Route: 048
     Dates: start: 20120213, end: 20120227
  8. ASPIRIN [Concomitant]
  9. CALAMINE [Concomitant]

REACTIONS (9)
  - HEPATITIS [None]
  - CHROMATURIA [None]
  - FATIGUE [None]
  - JAUNDICE [None]
  - FAECES DISCOLOURED [None]
  - PRURITUS [None]
  - DECREASED APPETITE [None]
  - WEIGHT DECREASED [None]
  - RASH [None]
